FAERS Safety Report 6902590-3 (Version None)
Quarter: 2010Q3

REPORT INFORMATION
  Report Type: 
  Country: None (occurrence: None)
  Receive Date: 20100803
  Receipt Date: 20080530
  Transmission Date: 20110219
  Serious: Yes (Other)
  Sender: FDA-Public Use
  Company Number: US-PFIZER INC-2008024098

PATIENT
  Sex: Female

DRUGS (6)
  1. LYRICA [Suspect]
     Indication: FIBROMYALGIA
     Route: 048
  2. LYRICA [Suspect]
     Indication: DEPRESSION
  3. LORTAB [Concomitant]
  4. FLEXERIL [Concomitant]
  5. ALL OTHER THERAPEUTIC PRODUCTS [Concomitant]
  6. TEMAZEPAM [Concomitant]

REACTIONS (5)
  - ABNORMAL DREAMS [None]
  - DIZZINESS [None]
  - HALLUCINATION, VISUAL [None]
  - HEADACHE [None]
  - TINNITUS [None]
